FAERS Safety Report 7640052-9 (Version None)
Quarter: 2011Q3

REPORT INFORMATION
  Report Type: 
  Country: None (occurrence: None)
  Receive Date: 20110727
  Receipt Date: 20110717
  Transmission Date: 20111222
  Serious: Yes (Other)
  Sender: FDA-Public Use
  Company Number: JP-RB-030698-11

PATIENT
  Age: 18 Year
  Sex: Male

DRUGS (3)
  1. BUPIVACAINE HCL [Suspect]
     Indication: PAIN
     Route: 008
  2. BUPRENORPHINE [Suspect]
     Indication: PAIN
     Route: 008
  3. DROPERIDOL [Suspect]
     Indication: PAIN
     Route: 008

REACTIONS (3)
  - DYSTONIA [None]
  - SUFFOCATION FEELING [None]
  - OFF LABEL USE [None]
